FAERS Safety Report 5209713-5 (Version None)
Quarter: 2007Q1

REPORT INFORMATION
  Report Type: 
  Country: None (occurrence: None)
  Receive Date: 20070116
  Receipt Date: 20070103
  Transmission Date: 20070707
  Serious: Yes (Hospitalization)
  Sender: FDA-Public Use
  Company Number: ES-BOEHRINGER INGELHEIM PHARMACEUTICALS, INC.-2007-DE-00044GD

PATIENT

DRUGS (7)
  1. ASPIRIN [Suspect]
  2. IBUPROFEN [Suspect]
  3. NAPROXEN [Suspect]
  4. PIROXICAM THOMAE [Suspect]
  5. MELOXICAM [Suspect]
  6. NSAIDS [Suspect]
  7. COXIBS [Suspect]

REACTIONS (3)
  - DRUG INTERACTION [None]
  - PEPTIC ULCER [None]
  - UPPER GASTROINTESTINAL HAEMORRHAGE [None]
